FAERS Safety Report 17744331 (Version 1)
Quarter: 2020Q2

REPORT INFORMATION
  Report Type: Spontaneous
  Country: CA (occurrence: CA)
  Receive Date: 20200505
  Receipt Date: 20200505
  Transmission Date: 20200714
  Serious: Yes (Death, Hospitalization, Other)
  Sender: FDA-Public Use
  Company Number: CA-SA-2020SA114455

PATIENT
  Age: 55 Year
  Sex: Male

DRUGS (11)
  1. FLOMAX [Suspect]
     Active Substance: TAMSULOSIN HYDROCHLORIDE
     Indication: PROSTATIC DISORDER
     Dosage: UNK
  2. CICLOSPORIN [Suspect]
     Active Substance: CYCLOSPORINE
     Indication: PRODUCT USED FOR UNKNOWN INDICATION
     Dosage: UNK
  3. STELARA [Concomitant]
     Active Substance: USTEKINUMAB
  4. ROSUVASTATIN. [Concomitant]
     Active Substance: ROSUVASTATIN
  5. COSENTYX [Suspect]
     Active Substance: SECUKINUMAB
     Indication: PSORIASIS
     Dosage: 300 MG,ONCE WEEKLY
     Route: 058
  6. COSENTYX [Suspect]
     Active Substance: SECUKINUMAB
     Dosage: 300 MG,MONTHLY
     Route: 058
  7. AMLODIPINE [Concomitant]
     Active Substance: AMLODIPINE BESYLATE
  8. PSORALEN [Concomitant]
     Active Substance: PSORALEN
  9. RAMIPRIL. [Concomitant]
     Active Substance: RAMIPRIL
  10. SPIRONOLACTONE. [Concomitant]
     Active Substance: SPIRONOLACTONE
  11. COSENTYX [Suspect]
     Active Substance: SECUKINUMAB
     Dosage: UNK
     Route: 058

REACTIONS (30)
  - Pancreatic carcinoma [Unknown]
  - Back pain [Unknown]
  - Fatigue [Unknown]
  - Breath sounds abnormal [Unknown]
  - Asthenia [Unknown]
  - Osteoarthritis [Unknown]
  - Sputum discoloured [Unknown]
  - Constipation [Unknown]
  - Death [Fatal]
  - Hepatic cancer [Unknown]
  - Nasopharyngitis [Unknown]
  - Sinusitis [Unknown]
  - Respiratory tract infection [Unknown]
  - Vomiting [Unknown]
  - Blood pressure decreased [Unknown]
  - Arthralgia [Unknown]
  - Cough [Unknown]
  - Dyspepsia [Unknown]
  - Gastrointestinal bacterial infection [Unknown]
  - Musculoskeletal pain [Unknown]
  - Pyrexia [Unknown]
  - Diarrhoea [Unknown]
  - Malaise [Unknown]
  - Productive cough [Unknown]
  - Bronchitis [Unknown]
  - Panic attack [Unknown]
  - Secretion discharge [Unknown]
  - Wheezing [Unknown]
  - Nausea [Unknown]
  - Dysphagia [Unknown]
